FAERS Safety Report 4967556-1 (Version None)
Quarter: 2006Q2

REPORT INFORMATION
  Report Type: 
  Country: None (occurrence: None)
  Receive Date: 20060410
  Receipt Date: 20060403
  Transmission Date: 20061013
  Serious: Yes (Other)
  Sender: FDA-Public Use
  Company Number: 13323/0037

PATIENT
  Age: 74 Year
  Sex: Female

DRUGS (9)
  1. CEFUROXIME [Suspect]
     Indication: DRUG USE FOR UNKNOWN INDICATION
     Route: 050
  2. LIDOCAINE [Suspect]
     Route: 065
  3. BUPIVACAINE [Suspect]
     Dosage: .02ML SINGLE DOSE
     Route: 065
  4. HYALURONIDASE [Suspect]
     Route: 065
  5. PROXYMETACAINE [Suspect]
     Route: 047
  6. POVIDONE IODINE [Suspect]
     Route: 065
  7. PREDNISOLONE [Suspect]
     Route: 065
  8. CHLORAMPHENICOL [Suspect]
     Route: 047
  9. ACETAZOLAMIDE [Concomitant]
     Route: 065

REACTIONS (4)
  - CONJUNCTIVAL OEDEMA [None]
  - EXOPHTHALMOS [None]
  - EYE PAIN [None]
  - PAROPHTHALMIA [None]
